FAERS Safety Report 5347575-6 (Version None)
Quarter: 2007Q2

REPORT INFORMATION
  Report Type: 
  Country: None (occurrence: None)
  Receive Date: 20070504
  Receipt Date: 20070226
  Transmission Date: 20071010
  Serious: Yes (Hospitalization)
  Sender: FDA-Public Use
  Company Number: PHEH2007US02410

PATIENT
  Age: 70 Year
  Sex: Female

DRUGS (1)
  1. DIOVAN HCT [Suspect]
     Indication: HYPERTENSION
     Dosage: 160MG VAL/25MG HCT, QD, ORAL
     Route: 048
     Dates: start: 20061101, end: 20070225

REACTIONS (2)
  - DEHYDRATION [None]
  - DIARRHOEA [None]
